FAERS Safety Report 4886020-1 (Version None)
Quarter: 2006Q1

REPORT INFORMATION
  Report Type: 
  Country: None (occurrence: None)
  Receive Date: 20060117
  Receipt Date: 20060105
  Transmission Date: 20060701
  Serious: Yes (Hospitalization)
  Sender: FDA-Public Use
  Company Number: 2006-01-0577

PATIENT
  Age: 40 Year
  Sex: Female

DRUGS (5)
  1. ALBUTEROL [Suspect]
     Indication: ASTHMA
     Dosage: 5 MG QID INHALATION
  2. BECLOMETHASONE DIPROPIONATE [Concomitant]
  3. TERBUTALINE INJECTABLE SOLUTION [Concomitant]
  4. PREDNISOLONE [Concomitant]
  5. THEOPHYLLINE-SR [Concomitant]

REACTIONS (5)
  - APHASIA [None]
  - ASTHMA [None]
  - BRONCHOSPASM PARADOXICAL [None]
  - CONDITION AGGRAVATED [None]
  - HEART RATE INCREASED [None]
